FAERS Safety Report 10353361 (Version 1)
Quarter: 2014Q3

REPORT INFORMATION
  Report Type: Spontaneous
  Country: CH (occurrence: CH)
  Receive Date: 20140731
  Receipt Date: 20140731
  Transmission Date: 20150326
  Serious: Yes (Death)
  Sender: FDA-Public Use
  Company Number: CH-ROCHE-1440961

PATIENT
  Age: 63 Year
  Sex: Male

DRUGS (7)
  1. FOSCAVIR [Concomitant]
     Active Substance: FOSCARNET SODIUM
     Indication: CYTOMEGALOVIRUS VIRAEMIA
  2. PREDNISONE. [Concomitant]
     Active Substance: PREDNISONE
  3. IMUREK [Concomitant]
     Active Substance: AZATHIOPRINE
  4. SOLU-MEDROL [Concomitant]
     Active Substance: METHYLPREDNISOLONE SODIUM SUCCINATE
  5. SANDIMMUNE [Concomitant]
     Active Substance: CYCLOSPORINE
     Route: 065
     Dates: start: 20130722, end: 20131018
  6. CELLCEPT [Suspect]
     Active Substance: MYCOPHENOLATE MOFETIL\MYCOPHENOLATE MOFETIL HYDROCHLORIDE
     Indication: PROPHYLAXIS AGAINST TRANSPLANT REJECTION
     Route: 065
     Dates: start: 20121205, end: 20130705
  7. PROGRAF [Suspect]
     Active Substance: TACROLIMUS\TACROLIMUS ANHYDROUS
     Indication: PROPHYLAXIS AGAINST TRANSPLANT REJECTION
     Route: 065
     Dates: start: 20121209, end: 20130722

REACTIONS (1)
  - Organising pneumonia [Fatal]

NARRATIVE: CASE EVENT DATE: 201306
